FAERS Safety Report 7916582-9 (Version None)
Quarter: 2011Q4

REPORT INFORMATION
  Report Type: 
  Country: None (occurrence: None)
  Receive Date: 20111031
  Receipt Date: 20111019
  Transmission Date: 20120403
  Serious: Yes (Hospitalization)
  Sender: FDA-Public Use
  Company Number: 2011030158

PATIENT
  Sex: Female

DRUGS (7)
  1. HIZENTRA [Suspect]
     Dosage: (20 G 1X/WEEK SUBCUTANEOUS), (SUBCUTANEOUS)
     Route: 058
     Dates: start: 20110930, end: 20110930
  2. HIZENTRA [Suspect]
     Dosage: (20 G 1X/WEEK SUBCUTANEOUS), (SUBCUTANEOUS)
     Route: 058
     Dates: start: 20111005, end: 20111005
  3. HIZENTRA [Suspect]
     Dosage: (20 G 1X/WEEK SUBCUTANEOUS), (SUBCUTANEOUS)
     Route: 058
     Dates: start: 20111012, end: 20111012
  4. HIZENTRA [Suspect]
     Dosage: (20 G 1X/WEEK SUBCUTANEOUS), (SUBCUTANEOUS)
     Route: 058
     Dates: start: 20110921, end: 20110921
  5. HIZENTRA [Suspect]
  6. HIZENTRA [Suspect]
  7. HIZENTRA [Suspect]

REACTIONS (8)
  - THROAT TIGHTNESS [None]
  - DYSPNOEA [None]
  - INFUSION RELATED REACTION [None]
  - PRODUCT COLOUR ISSUE [None]
  - PRODUCT PHYSICAL ISSUE [None]
  - FEELING ABNORMAL [None]
  - TRACHEAL OEDEMA [None]
  - PRODUCT QUALITY ISSUE [None]
